FAERS Safety Report 6836714-3 (Version None)
Quarter: 2010Q3

REPORT INFORMATION
  Report Type: 
  Country: None (occurrence: None)
  Receive Date: 20100713
  Receipt Date: 20100706
  Transmission Date: 20110219
  Serious: Yes (Death, Hospitalization)
  Sender: FDA-Public Use
  Company Number: US-GILEAD-2010-0029121

PATIENT
  Sex: Male

DRUGS (2)
  1. LETAIRIS [Suspect]
     Indication: PULMONARY ARTERIAL HYPERTENSION
     Route: 048
     Dates: start: 20080730, end: 20100601
  2. LETAIRIS [Suspect]
     Route: 048
     Dates: start: 20071218, end: 20080729

REACTIONS (3)
  - FLUID RETENTION [None]
  - HEPATIC NEOPLASM MALIGNANT [None]
  - PORTOPULMONARY HYPERTENSION [None]
